FAERS Safety Report 23713355 (Version 1)
Quarter: 2024Q2

REPORT INFORMATION
  Report Type: Spontaneous
  Country: CN (occurrence: None)
  Receive Date: 20240405
  Receipt Date: 20240405
  Transmission Date: 20240716
  Serious: Yes (Hospitalization)
  Sender: FDA-Public Use
  Company Number: 2024A078260

PATIENT
  Age: 20966 Day
  Sex: Male
  Weight: 70 kg

DRUGS (3)
  1. DURVALUMAB [Suspect]
     Active Substance: DURVALUMAB
     Indication: Infected neoplasm
     Route: 042
     Dates: start: 20231218, end: 20231218
  2. GEMCITABINE HYDROCHLORIDE [Suspect]
     Active Substance: GEMCITABINE HYDROCHLORIDE
     Indication: Infected neoplasm
     Route: 042
     Dates: start: 20231217, end: 20231224
  3. CISPLATIN [Suspect]
     Active Substance: CISPLATIN
     Indication: Infected neoplasm
     Route: 042
     Dates: start: 20231217, end: 20231217

REACTIONS (1)
  - Myelosuppression [Recovering/Resolving]

NARRATIVE: CASE EVENT DATE: 20231231
